FAERS Safety Report 7012406-5 (Version None)
Quarter: 2010Q3

REPORT INFORMATION
  Report Type: 
  Country: None (occurrence: None)
  Receive Date: 20100924
  Receipt Date: 20100910
  Transmission Date: 20110219
  Serious: Yes (Other)
  Sender: FDA-Public Use
  Company Number: US-SANOFI-AVENTIS-2010SA056901

PATIENT
  Age: 54 Year
  Sex: Female

DRUGS (10)
  1. ARAVA [Suspect]
     Indication: RHEUMATOID ARTHRITIS
     Route: 048
     Dates: start: 20040101, end: 20050815
  2. HERBAL PREPARATION [Concomitant]
     Indication: RHEUMATOID ARTHRITIS
  3. HERBAL PREPARATION [Concomitant]
  4. ALL OTHER THERAPEUTIC PRODUCTS [Concomitant]
  5. HYDROCHLOROTHIAZIDE [Concomitant]
  6. ACTONEL [Concomitant]
  7. ALTACE [Concomitant]
  8. ESOMEPRAZOLE MAGNESIUM [Concomitant]
  9. METOCLOPRAMIDE [Concomitant]
  10. METFORMIN [Concomitant]
     Dosage: 500MG QHS BUT THE PATIENT TAKES ONLY OCCASIONALLY FOR THE PAST FEW MONTHS.

REACTIONS (13)
  - CONSTIPATION [None]
  - DECREASED APPETITE [None]
  - DYSPHAGIA [None]
  - HEADACHE [None]
  - HEPATOTOXICITY [None]
  - HYPERHIDROSIS [None]
  - JAUNDICE [None]
  - NAUSEA [None]
  - PRURITUS [None]
  - RASH [None]
  - SLEEP DISORDER [None]
  - VOMITING [None]
  - WEIGHT DECREASED [None]
